FAERS Safety Report 23342899 (Version 1)
Quarter: 2023Q4

REPORT INFORMATION
  Report Type: Spontaneous
  Country: CA (occurrence: CA)
  Receive Date: 20231227
  Receipt Date: 20231227
  Transmission Date: 20240110
  Serious: Yes (Death, Other)
  Sender: FDA-Public Use
  Company Number: CA-AMGEN-CANSP2023227260

PATIENT

DRUGS (19)
  1. RITUXIMAB [Suspect]
     Active Substance: RITUXIMAB
     Indication: B-cell lymphoma
     Dosage: UNK
     Route: 065
  2. RITUXIMAB [Suspect]
     Active Substance: RITUXIMAB
     Indication: Haematopoietic stem cell mobilisation
  3. FILGRASTIM [Suspect]
     Active Substance: FILGRASTIM
     Indication: Haematopoietic stem cell mobilisation
     Dosage: UNK
     Route: 065
  4. CYCLOPHOSPHAMIDE [Concomitant]
     Active Substance: CYCLOPHOSPHAMIDE
     Indication: B-cell lymphoma
     Route: 065
  5. DOXORUBICIN [Concomitant]
     Active Substance: DOXORUBICIN
     Indication: B-cell lymphoma
     Route: 065
  6. VINCRISTINE [Concomitant]
     Active Substance: VINCRISTINE
     Indication: B-cell lymphoma
     Route: 065
  7. PREDNISONE [Concomitant]
     Active Substance: PREDNISONE
     Indication: B-cell lymphoma
     Route: 065
  8. METHOTREXATE [Concomitant]
     Active Substance: METHOTREXATE
     Indication: Prophylaxis
     Dosage: HIGH-DOSE
     Route: 042
  9. METHOTREXATE [Concomitant]
     Active Substance: METHOTREXATE
     Indication: B-cell lymphoma
  10. IFOSFAMIDE [Concomitant]
     Active Substance: IFOSFAMIDE
     Indication: B-cell lymphoma
     Route: 065
  11. ETOPOSIDE [Concomitant]
     Active Substance: ETOPOSIDE
     Indication: B-cell lymphoma
     Route: 065
  12. CYTARABINE [Concomitant]
     Active Substance: CYTARABINE
     Indication: B-cell lymphoma
     Route: 065
  13. GEMCITABINE [Concomitant]
     Active Substance: GEMCITABINE
     Indication: B-cell lymphoma
     Route: 065
  14. DEXAMETHASONE [Concomitant]
     Active Substance: DEXAMETHASONE
     Indication: B-cell lymphoma
     Route: 065
  15. CISPLATIN [Concomitant]
     Active Substance: CISPLATIN
     Indication: B-cell lymphoma
     Route: 065
  16. CARMUSTINE [Concomitant]
     Active Substance: CARMUSTINE
     Indication: B-cell lymphoma
     Route: 065
  17. MELPHALAN [Concomitant]
     Active Substance: MELPHALAN
     Indication: B-cell lymphoma
     Route: 065
  18. BUSULFAN [Concomitant]
     Active Substance: BUSULFAN
     Indication: B-cell lymphoma
     Route: 065
  19. THIOTEPA [Concomitant]
     Active Substance: THIOTEPA
     Indication: B-cell lymphoma
     Route: 065

REACTIONS (6)
  - Myeloproliferative neoplasm [Fatal]
  - Pulmonary fibrosis [Fatal]
  - B-cell lymphoma [Unknown]
  - B-cell lymphoma recurrent [Unknown]
  - COVID-19 [Fatal]
  - Therapy partial responder [Unknown]
